FAERS Safety Report 15923169 (Version 4)
Quarter: 2019Q1

REPORT INFORMATION
  Report Type: Report from Study
  Country: US (occurrence: US)
  Receive Date: 20190206
  Receipt Date: 20190329
  Transmission Date: 20190417
  Serious: No
  Sender: FDA-Public Use
  Company Number: US-TAKEDA-2019TUS003671

PATIENT
  Age: 64 Year
  Sex: Female

DRUGS (14)
  1. LEVOXYL [Concomitant]
     Active Substance: LEVOTHYROXINE SODIUM
     Route: 065
  2. PROCHLORPERAZ [Concomitant]
     Active Substance: PROCHLORPERAZINE MALEATE
     Dosage: UNK
  3. OMEPRAZOL                          /00661201/ [Concomitant]
     Active Substance: OMEPRAZOLE
     Route: 065
  4. IXAZOMIB [Suspect]
     Active Substance: IXAZOMIB
     Indication: PLASMA CELL MYELOMA
     Dosage: 4 MILLIGRAM
     Route: 048
     Dates: start: 20181125
  5. CALCARB [Concomitant]
     Route: 065
  6. POMALYST [Suspect]
     Active Substance: POMALIDOMIDE
     Indication: PLASMA CELL MYELOMA
     Dosage: 4 MILLIGRAM
     Route: 048
     Dates: start: 20181125
  7. CALCIUM PLUS                       /00751501/ [Concomitant]
     Active Substance: CALCIUM
     Route: 065
  8. MULTIVITAMIN                       /07504101/ [Concomitant]
     Active Substance: VITAMINS
     Route: 065
  9. TAPAZOL                            /00022901/ [Concomitant]
     Dosage: UNK
     Route: 065
  10. DOCQLACE [Concomitant]
     Active Substance: DOCUSATE SODIUM
     Route: 065
  11. ACYCLOVIR                          /00587301/ [Concomitant]
     Active Substance: ACYCLOVIR
     Route: 065
  12. MIRALAX [Concomitant]
     Active Substance: POLYETHYLENE GLYCOL 3350
     Route: 065
  13. DEXAMETHASONE. [Suspect]
     Active Substance: DEXAMETHASONE
     Indication: PLASMA CELL MYELOMA
     Dosage: UNK UNK, 1/WEEK
     Route: 065
     Dates: start: 20181125
  14. LEVOTHYROXIN [Concomitant]
     Active Substance: LEVOTHYROXINE
     Route: 065

REACTIONS (19)
  - Burning sensation [Unknown]
  - Rash [Unknown]
  - Headache [Unknown]
  - Weight increased [Recovered/Resolved]
  - Palpitations [Recovered/Resolved]
  - Blister infected [Recovered/Resolved]
  - Dyspnoea [Unknown]
  - Off label use [Unknown]
  - Impaired healing [Unknown]
  - Oropharyngeal pain [Unknown]
  - Visual field defect [Unknown]
  - Insomnia [Recovered/Resolved]
  - Head discomfort [Not Recovered/Not Resolved]
  - Dizziness [Unknown]
  - Mood altered [Unknown]
  - Skin odour abnormal [Not Recovered/Not Resolved]
  - Confusional state [Unknown]
  - Erythema [Recovered/Resolved]
  - White blood cell count decreased [Unknown]

NARRATIVE: CASE EVENT DATE: 201812
